FAERS Safety Report 16083377 (Version 1)
Quarter: 2019Q1

REPORT INFORMATION
  Report Type: Report from Study
  Country: US (occurrence: US)
  Receive Date: 20190318
  Receipt Date: 20190318
  Transmission Date: 20190418
  Serious: Yes (Other)
  Sender: FDA-Public Use
  Company Number: US-AMGEN INC.-USASL2019034300

PATIENT
  Age: 27 Year
  Sex: Female

DRUGS (3)
  1. AIMOVIG [Suspect]
     Active Substance: ERENUMAB-AOOE
     Indication: MIGRAINE
     Dosage: 70 MILLIGRAM, QMO
     Route: 065
     Dates: start: 20181120, end: 20181231
  2. BOTOX [Concomitant]
     Active Substance: ONABOTULINUMTOXINA
     Indication: MIGRAINE
     Dosage: UNK
  3. TOPIRAMATE. [Concomitant]
     Active Substance: TOPIRAMATE
     Indication: MIGRAINE PROPHYLAXIS
     Dosage: 15 MILLIGRAM, 2 BID

REACTIONS (1)
  - Migraine [Recovered/Resolved]

NARRATIVE: CASE EVENT DATE: 201812
